FAERS Safety Report 11111843 (Version 1)
Quarter: 2015Q2

REPORT INFORMATION
  Report Type: Spontaneous
  Country: US (occurrence: None)
  Receive Date: 20150512
  Receipt Date: 20150512
  Transmission Date: 20150821
  Serious: No
  Sender: FDA-Public Use
  Company Number: None

PATIENT
  Age: 58 Year
  Sex: Male
  Weight: 112.49 kg

DRUGS (16)
  1. RED CLOVER [Concomitant]
     Active Substance: RED CLOVER
  2. VITAMINS E [Concomitant]
  3. CHAMOMILE [Concomitant]
     Active Substance: CHAMOMILE
  4. STINGING NETTLE [Concomitant]
     Active Substance: HERBALS
  5. BURDOCKROOT [Concomitant]
  6. XNAX [Concomitant]
  7. PAPAYA. [Concomitant]
     Active Substance: PAPAYA
  8. VITAMINS  D [Concomitant]
  9. YELLOWDOCK [Concomitant]
  10. VITAMINS B [Concomitant]
  11. PRAVASTATIN [Suspect]
     Active Substance: PRAVASTATIN\PRAVASTATIN SODIUM
     Indication: BLOOD CHOLESTEROL INCREASED
     Route: 048
     Dates: start: 20150324, end: 20150417
  12. VITAMINS C [Concomitant]
  13. OMEGA 3 [Concomitant]
     Active Substance: OMEGA-3 FATTY ACIDS
  14. CHICKWEEK [Concomitant]
  15. FIBRE [Concomitant]
  16. GLUCOSMINE [Concomitant]

REACTIONS (12)
  - Nausea [None]
  - Dry skin [None]
  - Pollakiuria [None]
  - Myalgia [None]
  - Dysstasia [None]
  - Gait disturbance [None]
  - Headache [None]
  - Somnolence [None]
  - Muscular weakness [None]
  - Thirst [None]
  - Chest pain [None]
  - Weight increased [None]

NARRATIVE: CASE EVENT DATE: 20150417
